FAERS Safety Report 8978193 (Version 3)
Quarter: 2013Q1

REPORT INFORMATION
  Report Type: Spontaneous
  Country: BR (occurrence: BR)
  Receive Date: 20121220
  Receipt Date: 20130107
  Transmission Date: 20140127
  Serious: Yes (Hospitalization, Other)
  Sender: FDA-Public Use
  Company Number: PHHY2012BR116247

PATIENT
  Age: 62 Year
  Sex: Female

DRUGS (3)
  1. AMINOPHYLLINE SANDOZ [Suspect]
     Indication: ASTHMA
     Dosage: 0.2 G, 2 DF (1 TABLET IN THE MORNING AND 1 TABLET AT NIGHT)
     Route: 048
  2. AMINOPHYLLINE SANDOZ [Suspect]
     Dosage: 1 G 4 DF (2 TABLET IN THE MORNING AND 2 TABLET AT NIGHT)
     Route: 048
  3. AMINOFILINA [Suspect]

REACTIONS (9)
  - Dyspnoea [Recovered/Resolved]
  - Chest discomfort [Not Recovered/Not Resolved]
  - Cough [Not Recovered/Not Resolved]
  - Asthma [Not Recovered/Not Resolved]
  - Malaise [Unknown]
  - Epilepsy [Recovered/Resolved]
  - Nervousness [Not Recovered/Not Resolved]
  - Drug dependence [Unknown]
  - Fear [Unknown]
